FAERS Safety Report 15741651 (Version 5)
Quarter: 2019Q1

REPORT INFORMATION
  Report Type: Spontaneous
  Country: PL (occurrence: PL)
  Receive Date: 20181219
  Receipt Date: 20190315
  Transmission Date: 20190417
  Serious: Yes (Hospitalization, Other)
  Sender: FDA-Public Use
  Company Number: PL-NAPPMUNDI-GBR-2018-0062574

PATIENT
  Age: 52 Year
  Sex: Male

DRUGS (15)
  1. BUPRENORPHINE. [Suspect]
     Active Substance: BUPRENORPHINE
     Indication: PAIN
     Dosage: 35 MCG PER HOUR, EVERY 4 DAYS
     Route: 065
  2. KETOPROFEN. [Suspect]
     Active Substance: KETOPROFEN
     Indication: PAIN
     Dosage: 300 MG, DAILY (3 DOSAGES 100 MG DAILY)
     Route: 065
  3. METAMIZOLE [Suspect]
     Active Substance: METAMIZOLE
     Indication: ANALGESIC THERAPY
     Dosage: 1000 MG, DAILY (2 DOSAGES 500 MG DAILY)
     Route: 065
  4. ESCITALOPRAM [Suspect]
     Active Substance: ESCITALOPRAM OXALATE
     Indication: PRODUCT USED FOR UNKNOWN INDICATION
     Dosage: UNK
     Route: 065
  5. ALPRAZOLAM. [Suspect]
     Active Substance: ALPRAZOLAM
     Indication: PAIN
     Dosage: UNK
     Route: 065
  6. OMEPRAZOLE. [Suspect]
     Active Substance: OMEPRAZOLE
     Indication: ANALGESIC THERAPY
     Dosage: 20 MG, DAILY [20 MILLIGRAM, DAILY (IN THE MORNING, FASTING)]
     Route: 065
  7. MORPHINE SULFATE. [Concomitant]
     Active Substance: MORPHINE SULFATE
     Dosage: UNK
  8. ZOLEDRONIC ACID [Concomitant]
     Active Substance: ZOLEDRONIC ACID
     Dosage: UNK
     Route: 065
  9. GABAPENTIN. [Concomitant]
     Active Substance: GABAPENTIN
     Dosage: UNK
     Route: 065
  10. TRAZODONE [Concomitant]
     Active Substance: TRAZODONE HYDROCHLORIDE
     Dosage: UNK
     Route: 065
  11. EFFENTORA [Concomitant]
     Active Substance: FENTANYL CITRATE
     Indication: PAIN
     Dosage: UNK
  12. TRAMADOL HYDROCHLORIDE. [Suspect]
     Active Substance: TRAMADOL HYDROCHLORIDE
     Indication: PAIN
     Dosage: 200 MG, DAILY (100 MG BID)
     Route: 065
  13. METOCLOPRAMIDE. [Suspect]
     Active Substance: METOCLOPRAMIDE
     Indication: ANALGESIC THERAPY
     Dosage: 30 MG, DAILY (3 DOSAGES 10 MG DAILY)
     Route: 065
  14. BETAMETHASONE. [Concomitant]
     Active Substance: BETAMETHASONE
     Dosage: UNK
  15. VALPROIC ACID. [Concomitant]
     Active Substance: VALPROIC ACID
     Dosage: UNK
     Route: 065

REACTIONS (8)
  - Pain [Unknown]
  - Medication error [Unknown]
  - Pneumonia [Recovering/Resolving]
  - Dyschezia [Unknown]
  - Constipation [Unknown]
  - Weight decreased [Unknown]
  - Decreased appetite [Unknown]
  - Drug ineffective [Unknown]
